FAERS Safety Report 18189016 (Version 1)
Quarter: 2020Q3

REPORT INFORMATION
  Report Type: Report from Study
  Country: US (occurrence: US)
  Receive Date: 20200824
  Receipt Date: 20200824
  Transmission Date: 20201103
  Serious: Yes (Death, Hospitalization)
  Sender: FDA-Public Use
  Company Number: US-MYLANLABS-2020M1074011

PATIENT
  Age: 14 Year

DRUGS (7)
  1. MITOXANTRONE [Suspect]
     Active Substance: MITOXANTRONE HYDROCHLORIDE
     Indication: ACUTE LYMPHOCYTIC LEUKAEMIA
     Dosage: AS A PART OF UK ALLR3 REINDUCTION REGIMEN; ON DAY 8 AND 9
     Route: 065
  2. VINCRISTINE [Suspect]
     Active Substance: VINCRISTINE
     Indication: ACUTE LYMPHOCYTIC LEUKAEMIA
     Dosage: AS A PART OF UK ALLR3 REINDUCTION REGIMEN; MAXIMUM DOSE 2 MG) DAYS 10, 17, 24 AND 31
     Route: 065
  3. DECITABINE. [Suspect]
     Active Substance: DECITABINE
     Indication: ACUTE LYMPHOCYTIC LEUKAEMIA
     Dosage: ON DAYS 1?7 AND 15?21
     Route: 042
  4. METHOTREXATE. [Suspect]
     Active Substance: METHOTREXATE
     Indication: ACUTE LYMPHOCYTIC LEUKAEMIA
     Dosage: UNK
     Route: 037
  5. VORINOSTAT [Suspect]
     Active Substance: VORINOSTAT
     Indication: ACUTE LYMPHOCYTIC LEUKAEMIA
     Dosage: MAXIMUM DOSE 400 MG DAILY; ON DAYS 3?10 AND 17?24
     Route: 048
  6. PEG/L?ASPARAGINASE [Suspect]
     Active Substance: PEGASPARGASE
     Indication: ACUTE LYMPHOCYTIC LEUKAEMIA
     Dosage: AS A PART OF UK ALLR3 REINDUCTION REGIMEN; 2,500 IU/M2/DOSE ON DAY 10 AND 24
     Route: 065
  7. DEXAMETHASONE MYLAN [Suspect]
     Active Substance: DEXAMETHASONE
     Indication: ACUTE LYMPHOCYTIC LEUKAEMIA
     Dosage: AS A PART OF UK ALLR3 REINDUCTION REGIMEN; THE DOSE DIVIDED TWICE DAILY ON DAYS 8?12 AND 22?26
     Route: 065

REACTIONS (3)
  - Staphylococcal infection [Unknown]
  - Candida infection [Fatal]
  - Enterococcal infection [Unknown]
